FAERS Safety Report 5466261-5 (Version None)
Quarter: 2007Q3

REPORT INFORMATION
  Report Type: 
  Country: None (occurrence: None)
  Receive Date: 20070924
  Receipt Date: 20070913
  Transmission Date: 20080115
  Serious: Yes (Other)
  Sender: FDA-Public Use
  Company Number: BR-PFIZER INC-2007077429

PATIENT
  Sex: Male
  Weight: 72 kg

DRUGS (2)
  1. VIAGRA [Suspect]
     Route: 048
  2. ATENOLOL [Concomitant]
     Indication: TACHYCARDIA

REACTIONS (1)
  - BLISTER [None]
